APPROVED DRUG PRODUCT: TRIAMTERENE
Active Ingredient: TRIAMTERENE
Strength: 50MG
Dosage Form/Route: CAPSULE;ORAL
Application: A211581 | Product #001 | TE Code: AB
Applicant: AGNITIO INC
Approved: Aug 19, 2019 | RLD: No | RS: No | Type: RX